FAERS Safety Report 17435666 (Version 1)
Quarter: 2020Q1

REPORT INFORMATION
  Report Type: Spontaneous
  Country: AS (occurrence: AS)
  Receive Date: 20200204
  Receipt Date: 20200204
  Transmission Date: 20200409
  Serious: Yes (Hospitalization)
  Sender: FDA-Public Use
  Company Number: None

PATIENT
  Age: 76 Year
  Sex: Male
  Weight: 98 kg

DRUGS (1)
  1. APIXABAN (APIXABAN 5MG TAB) [Suspect]
     Active Substance: APIXABAN
     Route: 048
     Dates: start: 20190801, end: 20191118

REACTIONS (4)
  - Melaena [None]
  - Anaemia [None]
  - Hypothyroidism [None]
  - Gastric haemorrhage [None]

NARRATIVE: CASE EVENT DATE: 20191119
